FAERS Safety Report 9771810 (Version 1)
Quarter: 2013Q4

REPORT INFORMATION
  Report Type: Spontaneous
  Country: DE (occurrence: DE)
  Receive Date: 20131219
  Receipt Date: 20131219
  Transmission Date: 20140711
  Serious: Yes (Death)
  Sender: FDA-Public Use
  Company Number: DE-MERCK-1312DEU007932

PATIENT
  Age: 80 Year
  Sex: Female

DRUGS (7)
  1. CANCIDAS [Suspect]
     Indication: PYREXIA
     Dosage: UNK
     Route: 042
     Dates: start: 20080612, end: 20080612
  2. CANCIDAS [Suspect]
     Indication: EVIDENCE BASED TREATMENT
  3. CANCIDAS [Suspect]
     Indication: EVIDENCE BASED TREATMENT
  4. MERONEM [Concomitant]
     Indication: PYREXIA
     Dosage: UNK
     Dates: start: 20080612, end: 20080612
  5. MERONEM [Concomitant]
     Indication: EVIDENCE BASED TREATMENT
  6. VANCOMYCIN [Concomitant]
     Indication: PYREXIA
     Dosage: UNK
     Dates: start: 20080612, end: 20080612
  7. VANCOMYCIN [Concomitant]
     Indication: EVIDENCE BASED TREATMENT

REACTIONS (1)
  - Condition aggravated [Fatal]
